FAERS Safety Report 6439693-6 (Version None)
Quarter: 2009Q4

REPORT INFORMATION
  Report Type: 
  Country: None (occurrence: None)
  Receive Date: 20091113
  Receipt Date: 20091105
  Transmission Date: 20100525
  Serious: Yes (Hospitalization, Other)
  Sender: FDA-Public Use
  Company Number: GXKR2009DE12198

PATIENT
  Age: 56 Year
  Sex: Male

DRUGS (9)
  1. PREDNISOLONE [Suspect]
     Indication: IMMUNOSUPPRESSION
     Dosage: 5 MG/DAY
     Route: 065
  2. MYCOPHENOLATE MOFETIL (NGX) [Suspect]
     Indication: IMMUNOSUPPRESSION
     Route: 065
  3. MYCOPHENOLATE MOFETIL (NGX) [Suspect]
     Dosage: 500 MG, BID
     Route: 065
  4. METHYLPREDNISOLONE [Suspect]
     Indication: IMMUNOSUPPRESSION
     Dosage: 500 MG/DAY
     Route: 065
  5. METHYLPREDNISOLONE [Suspect]
     Dosage: 250 MG/DAY
     Route: 065
  6. CICLOSPORIN (NGX) [Suspect]
     Indication: IMMUNOSUPPRESSION
     Dosage: TARGET CONCENTRATION 80NG/L
     Route: 065
  7. TACROLIMUS [Suspect]
     Indication: IMMUNOSUPPRESSION
     Route: 065
  8. LEFLUNOMIDE (NGX) [Suspect]
     Indication: IMMUNOSUPPRESSION
     Dosage: 20 MG/DAY
     Route: 065
  9. LEFLUNOMIDE (NGX) [Suspect]
     Dosage: 60 MG/DAY
     Route: 065

REACTIONS (10)
  - ANAEMIA [None]
  - DIABETES MELLITUS [None]
  - DIALYSIS [None]
  - DIARRHOEA [None]
  - GLOMERULONEPHRITIS [None]
  - KIDNEY TRANSPLANT REJECTION [None]
  - NASOPHARYNGITIS [None]
  - POLYOMAVIRUS-ASSOCIATED NEPHROPATHY [None]
  - RENAL IMPAIRMENT [None]
  - TUBULOINTERSTITIAL NEPHRITIS [None]
